FAERS Safety Report 4533534-X (Version None)
Quarter: 2004Q4

REPORT INFORMATION
  Report Type: 
  Country: None (occurrence: None)
  Receive Date: 20041221
  Receipt Date: 20041215
  Transmission Date: 20050328
  Serious: Yes (Other)
  Sender: FDA-Public Use
  Company Number: US-JNJFOC-20041204285

PATIENT
  Age: 62 Year
  Sex: Female

DRUGS (3)
  1. SPORANOX [Suspect]
     Indication: HISTOPLASMOSIS
     Route: 042
     Dates: start: 20041214, end: 20041214
  2. PRIMAXIN [Suspect]
  3. PRIMAXIN [Suspect]
     Indication: DRUG USE FOR UNKNOWN INDICATION

REACTIONS (1)
  - RESPIRATORY DEPRESSION [None]
